FAERS Safety Report 5493886-3 (Version None)
Quarter: 2007Q4

REPORT INFORMATION
  Report Type: 
  Country: None (occurrence: None)
  Receive Date: 20071018
  Receipt Date: 20071001
  Transmission Date: 20080405
  Serious: Yes (Other)
  Sender: FDA-Public Use
  Company Number: 2007SP020485

PATIENT
  Sex: Female

DRUGS (1)
  1. AFRIN [Suspect]
     Dosage: NAS
     Route: 045
     Dates: start: 20070501

REACTIONS (2)
  - ATRIAL FIBRILLATION [None]
  - THROAT IRRITATION [None]
